FAERS Safety Report 23856422 (Version 3)
Quarter: 2024Q3

REPORT INFORMATION
  Report Type: Spontaneous
  Country: US (occurrence: US)
  Receive Date: 20240515
  Receipt Date: 20240702
  Transmission Date: 20241017
  Serious: Yes (Congenital Anomaly, Other)
  Sender: AMNEAL
  Company Number: US-AMNEAL PHARMACEUTICALS-2024-AMRX-01591

PATIENT
  Sex: Male
  Weight: 2.02 kg

DRUGS (5)
  1. RITONAVIR [Suspect]
     Active Substance: RITONAVIR
     Indication: Product used for unknown indication
     Dosage: 200 MILLIGRAM, DAILY
     Route: 064
  2. DARUNAVIR [Suspect]
     Active Substance: DARUNAVIR
     Indication: Product used for unknown indication
     Dosage: 1200 MILLIGRAM, DAILY
     Route: 064
  3. TENOFOVIR DISOPROXIL FUMARATE [Suspect]
     Active Substance: TENOFOVIR DISOPROXIL FUMARATE
     Indication: Product used for unknown indication
     Dosage: 300 MILLIGRAM, DAILY
     Route: 064
  4. DOLUTEGRAVIR [Suspect]
     Active Substance: DOLUTEGRAVIR
     Indication: Product used for unknown indication
     Dosage: 50 MILLIGRAM, DAILY
     Route: 064
  5. FOLATE SODIUM [Suspect]
     Active Substance: FOLATE SODIUM
     Indication: Vitamin supplementation
     Dosage: UNK
     Route: 065

REACTIONS (2)
  - Scrotal cyst [Unknown]
  - Foetal exposure during pregnancy [Unknown]
